FAERS Safety Report 12216938 (Version 2)
Quarter: 2016Q2

REPORT INFORMATION
  Report Type: Spontaneous
  Country: GB (occurrence: GB)
  Receive Date: 20160329
  Receipt Date: 20160408
  Transmission Date: 20160815
  Serious: Yes (Life-Threatening, Hospitalization)
  Sender: FDA-Public Use
  Company Number: PHFR2016GB002509

PATIENT
  Age: 23 Year
  Sex: Female

DRUGS (12)
  1. CHLORAL HYDRATE [Suspect]
     Active Substance: CHLORAL HYDRATE
     Indication: PRODUCT USED FOR UNKNOWN INDICATION
     Dosage: UNK
     Route: 065
  2. NEURONTIN [Suspect]
     Active Substance: GABAPENTIN
     Indication: EPILEPSY
     Dosage: 500 MG, TID
     Route: 065
  3. FRISIUM [Suspect]
     Active Substance: CLOBAZAM
     Indication: EPILEPSY
     Dosage: 10 MG, TID
     Route: 048
  4. MELATONIN [Suspect]
     Active Substance: MELATONIN
     Indication: SLEEP DISORDER
     Dosage: 4 MG, QD, (2-3 SACHETS WHEN NEEDED)
     Route: 065
  5. NITROFURANTOIN. [Suspect]
     Active Substance: NITROFURANTOIN
     Indication: PRODUCT USED FOR UNKNOWN INDICATION
     Dosage: 50 MG, QD (AT NIGHT)
     Route: 065
  6. MOVICOL [Suspect]
     Active Substance: POLYETHYLENE GLYCOL 3350\POTASSIUM CHLORIDE\SODIUM BICARBONATE\SODIUM CHLORIDE
     Indication: PRODUCT USED FOR UNKNOWN INDICATION
     Dosage: UNK UNK, PRN (2-3 SACHTES)
     Route: 065
  7. NORMACOL [Suspect]
     Active Substance: KARAYA GUM
     Indication: PRODUCT USED FOR UNKNOWN INDICATION
     Dosage: UNK
     Route: 065
  8. LAMICTAL [Suspect]
     Active Substance: LAMOTRIGINE
     Indication: SEIZURE
     Dosage: 275 MG, QD, (125 MG IN MORNING AND 150 MG AT NIGHT)
     Route: 065
  9. LAMICTAL [Suspect]
     Active Substance: LAMOTRIGINE
     Dosage: 150 MG, UNK
     Route: 065
  10. GLYCOPYRRONIUM BROMIDE [Suspect]
     Active Substance: GLYCOPYRRONIUM
     Indication: PRODUCT USED FOR UNKNOWN INDICATION
     Dosage: 2.5 MG, BID
     Route: 065
  11. GLYCOPYRRONIUM BROMIDE [Suspect]
     Active Substance: GLYCOPYRRONIUM
     Route: 065
  12. BUCCOLAM [Suspect]
     Active Substance: MIDAZOLAM HYDROCHLORIDE
     Indication: PRODUCT USED FOR UNKNOWN INDICATION
     Dosage: WHEN NEEDED AND IF SEIZURE LASTS FOR 5 OR MORE MINUTES
     Route: 065

REACTIONS (4)
  - Drooling [Not Recovered/Not Resolved]
  - Constipation [Not Recovered/Not Resolved]
  - Seizure [Not Recovered/Not Resolved]
  - Drug ineffective [Not Recovered/Not Resolved]
